FAERS Safety Report 10645436 (Version 1)
Quarter: 2014Q4

REPORT INFORMATION
  Report Type: Spontaneous
  Country: LT (occurrence: LT)
  Receive Date: 20141211
  Receipt Date: 20141211
  Transmission Date: 20150529
  Serious: Yes (Hospitalization)
  Sender: FDA-Public Use
  Company Number: LT-RANBAXY-2014R1-89957

PATIENT
  Age: 65 Year
  Sex: Female

DRUGS (5)
  1. PARACETAMOL [Suspect]
     Active Substance: ACETAMINOPHEN
     Indication: RESPIRATORY TRACT INFECTION
     Dosage: UNK
     Route: 065
  2. DEXTROMETHORPHAN [Suspect]
     Active Substance: DEXTROMETHORPHAN
     Indication: RESPIRATORY TRACT INFECTION
     Dosage: UNK
     Route: 065
  3. PSEUDOEPHEDRINE [Suspect]
     Active Substance: PSEUDOEPHEDRINE
     Indication: RESPIRATORY TRACT INFECTION
     Dosage: UNK
     Route: 065
  4. CEDAR OIL [Concomitant]
     Indication: RESPIRATORY TRACT INFECTION
     Dosage: UNK
     Route: 065
  5. AMOXICILLINE [Suspect]
     Active Substance: AMOXICILLIN
     Indication: BRONCHITIS VIRAL
     Dosage: UNK
     Route: 065

REACTIONS (3)
  - Pruritus [Unknown]
  - Hypersensitivity [Unknown]
  - Rash maculo-papular [Unknown]
